FAERS Safety Report 20572207 (Version 1)
Quarter: 2022Q1

REPORT INFORMATION
  Report Type: Spontaneous
  Country: US (occurrence: US)
  Receive Date: 20220309
  Receipt Date: 20220309
  Transmission Date: 20220423
  Serious: No
  Sender: FDA-Public Use
  Company Number: US-BRISTOL-MYERS SQUIBB COMPANY-BMS-2022-032011

PATIENT
  Age: 45 Year
  Sex: Female

DRUGS (1)
  1. ELIQUIS [Suspect]
     Active Substance: APIXABAN
     Indication: Pulmonary embolism
     Dosage: 5 MILLIGRAM, BID
     Route: 048
     Dates: start: 202201

REACTIONS (6)
  - Dry skin [Unknown]
  - Skin exfoliation [Unknown]
  - Onychoclasis [Unknown]
  - Headache [Unknown]
  - Alopecia [Unknown]
  - Back pain [Unknown]
